FAERS Safety Report 10535383 (Version 1)
Quarter: 2014Q4

REPORT INFORMATION
  Report Type: Spontaneous
  Country: JP (occurrence: JP)
  Receive Date: 20141022
  Receipt Date: 20141022
  Transmission Date: 20150529
  Serious: Yes (Death, Hospitalization, Other)
  Sender: FDA-Public Use
  Company Number: JP-GLAXOSMITHKLINE-JP2014JPN006083

PATIENT
  Age: 81 Year
  Sex: Male

DRUGS (2)
  1. ALKERAN [Suspect]
     Active Substance: MELPHALAN
     Indication: PLASMA CELL MYELOMA
     Dosage: UNK
     Route: 048
  2. PREDNISOLONE. [Concomitant]
     Active Substance: PREDNISOLONE
     Dosage: UNK
     Route: 065

REACTIONS (25)
  - Bradycardia [Unknown]
  - Arrhythmia [Unknown]
  - Mouth haemorrhage [Unknown]
  - Electrocardiogram T wave inversion [Unknown]
  - Respiratory rate increased [Unknown]
  - Vascular resistance pulmonary increased [Unknown]
  - Sudden death [Fatal]
  - Pulmonary congestion [Unknown]
  - Oedema [Unknown]
  - Respiratory alkalosis [Unknown]
  - Hepatic enzyme increased [Unknown]
  - Tricuspid valve incompetence [Unknown]
  - Renal impairment [Unknown]
  - Prostatic haemorrhage [Unknown]
  - Septic shock [Unknown]
  - Urinary tract infection [Unknown]
  - Dyspnoea at rest [Unknown]
  - Ulcer haemorrhage [Unknown]
  - Amyloidosis [Unknown]
  - Normochromic normocytic anaemia [Unknown]
  - Hyponatraemia [Unknown]
  - Hyperkalaemia [Unknown]
  - Pulmonary hypertension [Unknown]
  - Pulmonary artery dilatation [Unknown]
  - Electrocardiogram T wave amplitude decreased [Unknown]
